FAERS Safety Report 23339673 (Version 1)
Quarter: 2023Q4

REPORT INFORMATION
  Report Type: Spontaneous
  Country: US (occurrence: US)
  Receive Date: 20231226
  Receipt Date: 20231226
  Transmission Date: 20240110
  Serious: No
  Sender: FDA-Public Use
  Company Number: US-BAUSCH-BL-2023-018816

PATIENT
  Age: 40 Year
  Sex: Female

DRUGS (14)
  1. PIMECROLIMUS [Suspect]
     Active Substance: PIMECROLIMUS
     Indication: Psoriasis
     Route: 065
  2. PIMECROLIMUS [Suspect]
     Active Substance: PIMECROLIMUS
     Indication: Product use in unapproved indication
  3. DUOBRII [Suspect]
     Active Substance: HALOBETASOL PROPIONATE\TAZAROTENE
     Indication: Psoriasis
     Route: 061
  4. HYDROCORTISONE [Suspect]
     Active Substance: HYDROCORTISONE
     Indication: Psoriasis
     Route: 061
  5. HYDROCORTISONE [Suspect]
     Active Substance: HYDROCORTISONE
     Indication: Product use in unapproved indication
  6. DERMA-SMOOTHE/FS [Concomitant]
     Active Substance: FLUOCINOLONE ACETONIDE
     Indication: Psoriasis
     Dosage: DERMA-SMOOTHE SCALP OIL
     Route: 061
  7. TRIAMCINOLONE [Concomitant]
     Active Substance: TRIAMCINOLONE
     Indication: Psoriasis
     Route: 061
  8. CLOBETASOL [Concomitant]
     Active Substance: CLOBETASOL
     Indication: Psoriasis
     Route: 061
  9. CLOBETASOL [Concomitant]
     Active Substance: CLOBETASOL
     Route: 061
  10. TACROLIMUS [Concomitant]
     Active Substance: TACROLIMUS
     Indication: Psoriasis
  11. CALCIPOTRIENE [Concomitant]
     Active Substance: CALCIPOTRIENE
     Indication: Psoriasis
  12. KETOCONAZOLE [Concomitant]
     Active Substance: KETOCONAZOLE
     Indication: Psoriasis
  13. COSENTYX [Concomitant]
     Active Substance: SECUKINUMAB
     Indication: Psoriasis
     Dosage: ONCE A WEEK FOR FIVE WEEKS
     Dates: start: 202206, end: 2022
  14. COSENTYX [Concomitant]
     Active Substance: SECUKINUMAB
     Dosage: MONTHLY DOSE OF 300MG
     Dates: start: 2022

REACTIONS (5)
  - Rebound effect [Unknown]
  - Psoriasis [Unknown]
  - Skin depigmentation [Unknown]
  - Drug ineffective [Unknown]
  - Drug ineffective for unapproved indication [Unknown]
